FAERS Safety Report 8066798-9 (Version None)
Quarter: 2012Q1

REPORT INFORMATION
  Report Type: 
  Country: None (occurrence: None)
  Receive Date: 20120124
  Receipt Date: 20120118
  Transmission Date: 20120608
  Serious: Yes (Other)
  Sender: FDA-Public Use
  Company Number: US-ROCHE-791110

PATIENT
  Sex: Male
  Weight: 83.99 kg

DRUGS (2)
  1. ACCUTANE [Suspect]
     Indication: ACNE
     Route: 065
  2. MINOCIN [Concomitant]
     Indication: ACNE
     Dates: end: 19840225

REACTIONS (22)
  - INFLAMMATORY BOWEL DISEASE [None]
  - ENTEROCUTANEOUS FISTULA [None]
  - DEPRESSION [None]
  - MUSCULAR WEAKNESS [None]
  - POUCHITIS [None]
  - ANXIETY [None]
  - CELLULITIS [None]
  - BLOOD ALKALINE PHOSPHATASE INCREASED [None]
  - ABDOMINAL ABSCESS [None]
  - SMALL INTESTINAL OBSTRUCTION [None]
  - CHAPPED LIPS [None]
  - SPLENOMEGALY [None]
  - COLITIS ULCERATIVE [None]
  - IRRITABLE BOWEL SYNDROME [None]
  - ANAEMIA [None]
  - CHOLELITHIASIS [None]
  - INTESTINAL OBSTRUCTION [None]
  - JOINT STIFFNESS [None]
  - POSTOPERATIVE WOUND INFECTION [None]
  - HAEMOGLOBIN DECREASED [None]
  - INTESTINAL HAEMORRHAGE [None]
  - LIP DRY [None]
